FAERS Safety Report 5711277-4 (Version None)
Quarter: 2008Q2

REPORT INFORMATION
  Report Type: 
  Country: None (occurrence: None)
  Receive Date: 20080418
  Receipt Date: 20080418
  Transmission Date: 20081010
  Serious: Yes (Other)
  Sender: FDA-Public Use
  Company Number: None

PATIENT
  Age: 49 Year
  Sex: Male
  Weight: 106.5953 kg

DRUGS (9)
  1. MERREM [Suspect]
     Indication: PNEUMONIA ASPIRATION
     Dosage: 1 GRAM EVERY 8 HOURS IV
     Route: 042
     Dates: start: 20080211, end: 20080214
  2. PANTOPRAZOLE SODIUM [Concomitant]
  3. METHYLPREDNISOLONE [Concomitant]
  4. LACTULOSE [Concomitant]
  5. MULTI-VITAMIN [Concomitant]
  6. DOXYCYCLINE [Concomitant]
  7. FENTANYL CITRATE [Concomitant]
  8. FUROSEMIDE [Concomitant]
  9. GENTAMICIN [Concomitant]

REACTIONS (2)
  - CONVULSION [None]
  - DRUG INEFFECTIVE [None]
